FAERS Safety Report 10848256 (Version 1)
Quarter: 2015Q1

REPORT INFORMATION
  Report Type: Spontaneous
  Country: US (occurrence: US)
  Receive Date: 20150220
  Receipt Date: 20150220
  Transmission Date: 20150721
  Serious: No
  Sender: FDA-Public Use
  Company Number: US-CELGENEUS-163-21880-14023774

PATIENT
  Sex: Male
  Weight: 86.2 kg

DRUGS (2)
  1. REVLIMID [Suspect]
     Active Substance: LENALIDOMIDE
     Indication: PLASMA CELL MYELOMA
     Dosage: 25 MILLIGRAM
     Route: 048
     Dates: start: 201401
  2. LUPRON [Concomitant]
     Active Substance: LEUPROLIDE ACETATE
     Indication: RHEUMATOID ARTHRITIS
     Route: 065

REACTIONS (1)
  - Hot flush [Unknown]
